FAERS Safety Report 20347344 (Version 1)
Quarter: 2022Q1

REPORT INFORMATION
  Report Type: Spontaneous
  Country: US (occurrence: None)
  Receive Date: 20220118
  Receipt Date: 20220118
  Transmission Date: 20220424
  Serious: No
  Sender: FDA-Public Use
  Company Number: US-Merck KGaA-7091910

PATIENT
  Sex: Female

DRUGS (2)
  1. REBIF [Suspect]
     Active Substance: INTERFERON BETA-1A
     Indication: Multiple sclerosis
     Dosage: REBIF: REBIF PREFILLED?SYRINGE
     Route: 058
     Dates: start: 20071030
  2. PROVIGIL [Concomitant]
     Active Substance: MODAFINIL
     Indication: Fatigue

REACTIONS (2)
  - Fatigue [Not Recovered/Not Resolved]
  - Multiple sclerosis relapse [Unknown]
